FAERS Safety Report 24738382 (Version 1)
Quarter: 2024Q4

REPORT INFORMATION
  Report Type: Spontaneous
  Country: FR (occurrence: FR)
  Receive Date: 20241216
  Receipt Date: 20241216
  Transmission Date: 20250115
  Serious: Yes (Death)
  Sender: PFIZER
  Company Number: None

PATIENT
  Age: 20 Year
  Sex: Male
  Weight: 50 kg

DRUGS (14)
  1. CYTARABINE [Suspect]
     Active Substance: CYTARABINE
     Indication: Acute myeloid leukaemia
     Dosage: 306 MG, 1X/DAY
     Route: 042
     Dates: start: 20240927, end: 20241004
  2. CERUBIDINE [Suspect]
     Active Substance: DAUNORUBICIN HYDROCHLORIDE
     Indication: Acute myeloid leukaemia
     Dosage: 92 MG, 1X/DAY
     Route: 042
     Dates: start: 20240927, end: 20240929
  3. METHYLPREDNISOLONE [Concomitant]
     Active Substance: METHYLPREDNISOLONE
     Dosage: UNK
  4. KINERET [Concomitant]
     Active Substance: ANAKINRA
     Dosage: UNK
  5. ISAVUCONAZOLE [Concomitant]
     Active Substance: ISAVUCONAZOLE
     Dosage: UNK
  6. AMBISOME [Concomitant]
     Active Substance: AMPHOTERICIN B
     Dosage: UNK
  7. PIPERACILLIN SODIUM\TAZOBACTAM SODIUM [Concomitant]
     Active Substance: PIPERACILLIN SODIUM\TAZOBACTAM SODIUM
     Dosage: UNK
  8. LINEZOLID [Concomitant]
     Active Substance: LINEZOLID
     Dosage: UNK
  9. VALACYCLOVIR HYDROCHLORIDE [Concomitant]
     Active Substance: VALACYCLOVIR HYDROCHLORIDE
     Dosage: UNK
  10. ATOVAQUONE [Concomitant]
     Active Substance: ATOVAQUONE
     Dosage: UNK
  11. PANTOPRAZOLE [Concomitant]
     Active Substance: PANTOPRAZOLE
     Dosage: UNK
  12. NEFOPAM [Concomitant]
     Active Substance: NEFOPAM
     Dosage: UNK
  13. FOLIC ACID [Concomitant]
     Active Substance: FOLIC ACID
     Dosage: UNK
  14. GABAPENTIN [Concomitant]
     Active Substance: GABAPENTIN
     Dosage: UNK

REACTIONS (2)
  - Febrile bone marrow aplasia [Fatal]
  - Septic shock [Fatal]

NARRATIVE: CASE EVENT DATE: 20241004
